FAERS Safety Report 12695329 (Version 4)
Quarter: 2016Q3

REPORT INFORMATION
  Report Type: Report from Study
  Country: DE (occurrence: DE)
  Receive Date: 20160829
  Receipt Date: 20160922
  Transmission Date: 20161109
  Serious: Yes (Death, Hospitalization, Other)
  Sender: FDA-Public Use
  Company Number: PHHY2016DE117716

PATIENT
  Sex: Male
  Weight: 75 kg

DRUGS (1)
  1. REVOLADE [Suspect]
     Active Substance: ELTROMBOPAG
     Indication: IMMUNE THROMBOCYTOPENIC PURPURA
     Dosage: 50 MG, QD
     Route: 048
     Dates: start: 20160628, end: 20160711

REACTIONS (8)
  - Marrow hyperplasia [Unknown]
  - Dyspnoea [Fatal]
  - Sepsis [Fatal]
  - Thrombocytopenia [Fatal]
  - Myelodysplastic syndrome [Unknown]
  - Gastrointestinal haemorrhage [Fatal]
  - Anaemia [Fatal]
  - Acute myeloid leukaemia [Fatal]

NARRATIVE: CASE EVENT DATE: 20160630
